FAERS Safety Report 16218271 (Version 1)
Quarter: 2019Q2

REPORT INFORMATION
  Report Type: Report from Study
  Country: BR (occurrence: BR)
  Receive Date: 20190419
  Receipt Date: 20190419
  Transmission Date: 20190711
  Serious: Yes (Other)
  Sender: FDA-Public Use
  Company Number: PHHY2019BR087623

PATIENT
  Sex: Female

DRUGS (7)
  1. AFINITOR [Suspect]
     Active Substance: EVEROLIMUS
     Indication: BREAST CANCER
     Dosage: 10 MG, UNK
     Route: 065
     Dates: start: 201807
  2. AFINITOR [Suspect]
     Active Substance: EVEROLIMUS
     Dosage: 7.5 MG, UNK
     Route: 065
  3. LETROZOLE. [Suspect]
     Active Substance: LETROZOLE
     Indication: PRODUCT USED FOR UNKNOWN INDICATION
     Dosage: 2.5 MG, UNK
     Route: 065
     Dates: start: 201512, end: 201807
  4. TAMOXIFEN [Suspect]
     Active Substance: TAMOXIFEN
     Indication: PRODUCT USED FOR UNKNOWN INDICATION
     Dosage: UNK
     Route: 048
     Dates: start: 201312
  5. AROMASIN [Suspect]
     Active Substance: EXEMESTANE
     Indication: METASTASES TO BONE
     Dosage: 25 MG, UNK
     Route: 065
     Dates: start: 201807
  6. AROMASIN [Suspect]
     Active Substance: EXEMESTANE
     Dosage: 20 MG, UNK
     Route: 065
  7. ZOMETA [Suspect]
     Active Substance: ZOLEDRONIC ACID
     Indication: BONE DISORDER
     Dosage: UNK
     Route: 065
     Dates: start: 2015

REACTIONS (20)
  - Pulmonary oedema [Unknown]
  - Metastases to liver [Unknown]
  - Spinal fracture [Unknown]
  - Metastases to spine [Unknown]
  - Decreased appetite [Unknown]
  - Fatigue [Unknown]
  - Uterine polyp [Unknown]
  - Endometrial thickening [Unknown]
  - Malaise [Unknown]
  - Cough [Unknown]
  - Metastases to lung [Unknown]
  - Breast cancer [Unknown]
  - Metastases to bone [Unknown]
  - Oropharyngeal pain [Unknown]
  - Pyrexia [Unknown]
  - Vomiting [Unknown]
  - Malignant neoplasm progression [Unknown]
  - Dyspnoea [Unknown]
  - Blood test abnormal [Unknown]
  - Mucosal inflammation [Unknown]

NARRATIVE: CASE EVENT DATE: 2015
